FAERS Safety Report 4750432-7 (Version None)
Quarter: 2005Q3

REPORT INFORMATION
  Report Type: 
  Country: None (occurrence: None)
  Receive Date: 20050823
  Receipt Date: 20050815
  Transmission Date: 20060218
  Serious: Yes (Other)
  Sender: FDA-Public Use
  Company Number: PHBS2005DK12079

PATIENT
  Age: 39 Year
  Sex: Female

DRUGS (7)
  1. TAXOTERE [Concomitant]
     Route: 065
     Dates: start: 20020510, end: 20030901
  2. VINORELBINE [Concomitant]
     Route: 065
     Dates: start: 20030901, end: 20040101
  3. XELODA [Concomitant]
     Route: 065
     Dates: start: 20040101, end: 20040401
  4. XELODA [Concomitant]
     Route: 065
     Dates: start: 20050501
  5. FEMARA [Concomitant]
     Dosage: 2.5 MG/D
     Route: 065
     Dates: start: 20040501, end: 20040601
  6. ZOMETA [Suspect]
     Indication: METASTASES TO BONE
     Dosage: 4 MG, QMO
     Route: 042
     Dates: start: 20020510, end: 20050120
  7. ZOMETA [Suspect]
     Dosage: 4 MG, QMO
     Route: 042
     Dates: start: 20050401

REACTIONS (2)
  - OSTEOMYELITIS [None]
  - OSTEONECROSIS [None]
